FAERS Safety Report 9454360 (Version 1)
Quarter: 2013Q3

REPORT INFORMATION
  Report Type: Spontaneous
  Country: IT (occurrence: IT)
  Receive Date: 20130812
  Receipt Date: 20130812
  Transmission Date: 20140515
  Serious: Yes (Hospitalization)
  Sender: FDA-Public Use
  Company Number: IT-BRISTOL-MYERS SQUIBB COMPANY-19179332

PATIENT
  Age: 83 Year
  Sex: Female

DRUGS (1)
  1. COUMADIN TABS 5 MG [Suspect]
     Indication: ATRIAL FIBRILLATION
     Dosage: 1DF=1 UNIT?INTERRUPTED ON 30MAY2013
     Route: 048
     Dates: start: 20130101

REACTIONS (2)
  - Anaemia [Unknown]
  - International normalised ratio increased [Unknown]
